FAERS Safety Report 10394384 (Version 2)
Quarter: 2014Q4

REPORT INFORMATION
  Report Type: Spontaneous
  Country: US (occurrence: US)
  Receive Date: 20140819
  Receipt Date: 20141014
  Transmission Date: 20150528
  Serious: Yes (Other)
  Sender: FDA-Public Use
  Company Number: US-009507513-1408USA010895

PATIENT
  Sex: Female

DRUGS (1)
  1. NUVARING [Suspect]
     Active Substance: ETHINYL ESTRADIOL\ETONOGESTREL
     Indication: CONTRACEPTION
     Dosage: UNK
     Route: 067
     Dates: start: 201105, end: 2012

REACTIONS (9)
  - Depression [Unknown]
  - Epistaxis [Unknown]
  - Hypoaesthesia [Unknown]
  - International normalised ratio decreased [Unknown]
  - Peripheral swelling [Recovered/Resolved]
  - Anxiety [Unknown]
  - Lung disorder [Unknown]
  - Pulmonary embolism [Unknown]
  - Migraine [Unknown]

NARRATIVE: CASE EVENT DATE: 201202
